FAERS Safety Report 16901746 (Version 1)
Quarter: 2019Q4

REPORT INFORMATION
  Report Type: Spontaneous
  Country: TH (occurrence: TH)
  Receive Date: 20191010
  Receipt Date: 20191010
  Transmission Date: 20200122
  Serious: Yes (Death)
  Sender: FDA-Public Use
  Company Number: TH-BAXTER-2019BAX019920

PATIENT
  Age: 79 Year
  Sex: Female

DRUGS (1)
  1. DIANEAL LOW CALCIUM PERITONEAL DIALYSIS SOLUTION WITH DEXTROSE [Suspect]
     Active Substance: CALCIUM CHLORIDE\DEXTROSE\MAGNESIUM CHLORIDE\SODIUM CHLORIDE\SODIUM LACTATE
     Indication: PERITONEAL DIALYSIS
     Route: 033
     Dates: start: 20180514, end: 20190923

REACTIONS (1)
  - Cardiac failure chronic [Fatal]
